FAERS Safety Report 6669184-9 (Version None)
Quarter: 2010Q2

REPORT INFORMATION
  Report Type: 
  Country: None (occurrence: None)
  Receive Date: 20100406
  Receipt Date: 20100326
  Transmission Date: 20101027
  Serious: Yes (Other)
  Sender: FDA-Public Use
  Company Number: BR-PFIZER INC-2010039496

PATIENT
  Age: 29 Year
  Sex: Female
  Weight: 52 kg

DRUGS (1)
  1. DOSTINEX [Suspect]
     Indication: LACTATION INHIBITION THERAPY
     Dosage: 0.5 MG, WEEKLY
     Route: 048
     Dates: start: 20100323

REACTIONS (4)
  - BREAST ENLARGEMENT [None]
  - BREAST MASS [None]
  - BREAST PAIN [None]
  - LACTATION DISORDER [None]
